FAERS Safety Report 10013805 (Version 2)
Quarter: 2014Q1

REPORT INFORMATION
  Report Type: Spontaneous
  Country: US (occurrence: US)
  Receive Date: 20140316
  Receipt Date: 20140316
  Transmission Date: 20141002
  Serious: Yes (Disabling)
  Sender: FDA-Public Use
  Company Number: US-GE HEALTHCARE MEDICAL DIAGNOSTICS-OSCN-PR-0805S-0271

PATIENT
  Age: 68 Year
  Sex: Male

DRUGS (14)
  1. OMNISCAN [Suspect]
     Indication: BACK PAIN
     Route: 042
     Dates: start: 20031130, end: 20031130
  2. OMNISCAN [Suspect]
     Route: 042
     Dates: start: 20050118, end: 20050118
  3. OMNISCAN [Suspect]
     Route: 042
     Dates: start: 20050301, end: 20050301
  4. MAGNEVIST [Suspect]
     Indication: PLASMA CELL MYELOMA
     Dates: start: 20050609, end: 20050609
  5. MAGNEVIST [Suspect]
     Indication: BACK PAIN
     Dates: start: 20050610, end: 20050610
  6. MAGNEVIST [Suspect]
     Dates: start: 20050909, end: 20050909
  7. MAGNEVIST [Suspect]
     Dates: start: 20050914, end: 20050914
  8. MAGNEVIST [Suspect]
     Dates: start: 20060327, end: 20060327
  9. MAGNEVIST [Suspect]
     Dates: start: 20060329, end: 20060329
  10. MAGNEVIST [Suspect]
     Dates: start: 20060331, end: 20060331
  11. THALIDOMIDE [Concomitant]
     Indication: PLASMA CELL MYELOMA
  12. MELPHALAN [Concomitant]
     Indication: PLASMA CELL MYELOMA
  13. PREDNISONE [Concomitant]
     Indication: PLASMA CELL MYELOMA
  14. ZOMETA [Concomitant]
     Indication: PLASMA CELL MYELOMA

REACTIONS (1)
  - Nephrogenic systemic fibrosis [Not Recovered/Not Resolved]
